FAERS Safety Report 26189705 (Version 1)
Quarter: 2025Q4

REPORT INFORMATION
  Report Type: Report from Study
  Country: CO (occurrence: CO)
  Receive Date: 20251223
  Receipt Date: 20251223
  Transmission Date: 20260117
  Serious: Yes (Hospitalization, Other)
  Sender: ABBVIE
  Company Number: CO-ABBVIE-6517707

PATIENT
  Age: 62 Year
  Sex: Female
  Weight: 80 kg

DRUGS (2)
  1. RINVOQ [Suspect]
     Active Substance: UPADACITINIB
     Indication: Rheumatoid arthritis
     Dosage: FORM STRENGTH:15MG
     Route: 048
     Dates: start: 20230609, end: 20251002
  2. RINVOQ [Suspect]
     Active Substance: UPADACITINIB
     Indication: Rheumatoid arthritis
     Dosage: FORM STRENGTH:15MG
     Route: 048
     Dates: start: 2025

REACTIONS (14)
  - Cardiac dysfunction [Not Recovered/Not Resolved]
  - Ischaemia [Not Recovered/Not Resolved]
  - Hypertension [Unknown]
  - Insomnia [Unknown]
  - Blood cholesterol increased [Unknown]
  - Glucose tolerance impaired [Recovered/Resolved]
  - Aneurysm [Unknown]
  - Vein rupture [Unknown]
  - Fatigue [Recovered/Resolved]
  - Respiration abnormal [Recovered/Resolved]
  - Paraesthesia [Recovered/Resolved]
  - Ear disorder [Recovered/Resolved]
  - Eye disorder [Recovered/Resolved]
  - Arrhythmia [Unknown]

NARRATIVE: CASE EVENT DATE: 20250101
